FAERS Safety Report 6299477-9 (Version None)
Quarter: 2009Q3

REPORT INFORMATION
  Report Type: 
  Country: None (occurrence: None)
  Receive Date: 20090806
  Receipt Date: 20090731
  Transmission Date: 20100115
  Serious: Yes (Other)
  Sender: FDA-Public Use
  Company Number: B0584175A

PATIENT
  Sex: Male

DRUGS (8)
  1. PAXIL [Suspect]
     Indication: DEPRESSION
     Route: 048
     Dates: start: 20090601, end: 20090713
  2. LIORESAL [Suspect]
     Indication: SPASTIC PARALYSIS
     Route: 048
     Dates: start: 20090705, end: 20090713
  3. BLOPRESS [Concomitant]
     Dosage: 2MG PER DAY
     Route: 048
     Dates: start: 20090711, end: 20090714
  4. GRANDAXIN [Concomitant]
     Indication: NEUROLOGICAL SYMPTOM
     Dosage: 150MG PER DAY
     Route: 048
     Dates: start: 20090711, end: 20090715
  5. ROHYPNOL [Concomitant]
     Indication: INSOMNIA
     Dosage: 1MG PER DAY
     Route: 048
     Dates: start: 20090310
  6. GASMOTIN [Concomitant]
     Indication: GASTROENTERITIS
     Dosage: 15MG PER DAY
     Route: 048
     Dates: start: 20090310
  7. URSO 250 [Concomitant]
     Indication: VIRAL HEPATITIS CARRIER
     Dosage: 300MG PER DAY
     Route: 048
     Dates: start: 20090310
  8. RISUMIC [Concomitant]
     Indication: ORTHOSTATIC HYPOTENSION
     Route: 048
     Dates: start: 20090326, end: 20090708

REACTIONS (3)
  - BLOOD PRESSURE FLUCTUATION [None]
  - HEADACHE [None]
  - NECK PAIN [None]
